FAERS Safety Report 9843355 (Version 1)
Quarter: 2013Q4

REPORT INFORMATION
  Report Type: Spontaneous
  Country: US (occurrence: None)
  Receive Date: 20131223
  Receipt Date: 20131223
  Transmission Date: 20140711
  Serious: Yes (Other)
  Sender: FDA-Public Use
  Company Number: 219682LEO

PATIENT
  Age: 69 Year
  Sex: Male

DRUGS (6)
  1. PICATO [Suspect]
     Indication: ACTINIC KERATOSIS
     Dosage: 1 IN 1 D TOPICAL
     Dates: start: 20121113, end: 20121115
  2. METMORPHINE (MORPHINE) [Concomitant]
  3. ALLOPURINOL (ALLOPURINOL) [Concomitant]
  4. METROPOLOL (METOPROLOL) [Concomitant]
  5. LIPITOR (ATORVASTATIN CALCIUM) [Concomitant]
  6. LISINOPRIL (LISINOPRIL) [Concomitant]

REACTIONS (1)
  - Application site erythema [None]
